FAERS Safety Report 6521394-7 (Version None)
Quarter: 2009Q4

REPORT INFORMATION
  Report Type: 
  Country: None (occurrence: None)
  Receive Date: 20091230
  Receipt Date: 20091221
  Transmission Date: 20100525
  Serious: Yes (Life-Threatening)
  Sender: FDA-Public Use
  Company Number: FR-MILLENNIUM PHARMACEUTICALS, INC.-2009-05351

PATIENT

DRUGS (3)
  1. VELCADE [Suspect]
     Indication: MULTIPLE MYELOMA
     Dosage: 1.3 MG/M2, UNK
     Dates: start: 20091210
  2. MELPHALAN [Concomitant]
  3. PREDNISONE [Concomitant]

REACTIONS (2)
  - COMA [None]
  - THROMBOCYTOPENIA [None]
